FAERS Safety Report 6014268-1 (Version None)
Quarter: 2008Q4

REPORT INFORMATION
  Report Type: 
  Country: None (occurrence: None)
  Receive Date: 20081219
  Receipt Date: 20080314
  Transmission Date: 20090506
  Serious: No
  Sender: FDA-Public Use
  Company Number: A0715538A

PATIENT
  Age: 81 Year
  Sex: Male

DRUGS (8)
  1. AVODART [Suspect]
     Indication: BENIGN PROSTATIC HYPERPLASIA
     Dosage: .5MG PER DAY
     Route: 048
     Dates: start: 20080221
  2. VESICARE [Concomitant]
  3. DIAVAN [Concomitant]
  4. ASPIRIN [Concomitant]
  5. FLOMAX [Concomitant]
  6. VITAMINS [Concomitant]
  7. VYTORIN [Concomitant]
  8. FOLGARD [Concomitant]

REACTIONS (3)
  - DANDRUFF [None]
  - PRURITUS [None]
  - SKIN LESION [None]
